FAERS Safety Report 12178491 (Version 1)
Quarter: 2016Q1

REPORT INFORMATION
  Report Type: Spontaneous
  Country: US (occurrence: US)
  Receive Date: 20160314
  Receipt Date: 20160314
  Transmission Date: 20160526
  Serious: No
  Sender: FDA-Public Use
  Company Number: US-SA-2015SA221487

PATIENT
  Age: 66 Year
  Sex: Male

DRUGS (2)
  1. NOVOLIN [Concomitant]
     Active Substance: INSULIN HUMAN
     Route: 065
  2. TOUJEO [Suspect]
     Active Substance: INSULIN GLARGINE
     Indication: TYPE 2 DIABETES MELLITUS
     Dosage: START DATE: 3 WEEKS
     Route: 065
     Dates: start: 201512

REACTIONS (1)
  - Blood glucose abnormal [Unknown]
